FAERS Safety Report 10813854 (Version 1)
Quarter: 2015Q1

REPORT INFORMATION
  Report Type: Report from Study
  Country: US (occurrence: US)
  Receive Date: 20150218
  Receipt Date: 20150218
  Transmission Date: 20150721
  Serious: No
  Sender: FDA-Public Use
  Company Number: US-ABBVIE-14K-163-1276485-00

PATIENT
  Age: 69 Year
  Sex: Female

DRUGS (21)
  1. HUMIRA [Suspect]
     Active Substance: ADALIMUMAB
     Indication: CROHN^S DISEASE
     Dates: start: 20140610, end: 20140610
  2. HUMIRA [Suspect]
     Active Substance: ADALIMUMAB
     Dates: start: 20140708
  3. LEVOTHYROXINE [Concomitant]
     Active Substance: LEVOTHYROXINE
     Indication: HYPOTHYROIDISM
  4. REFRESH EYE DROPS [Concomitant]
     Indication: DRY EYE
  5. CENTRUM SILVER [Concomitant]
     Active Substance: VITAMINS
     Indication: PRODUCT USED FOR UNKNOWN INDICATION
  6. CENTRUM [Concomitant]
     Active Substance: VITAMINS
     Indication: EYE DISORDER
  7. HUMIRA [Suspect]
     Active Substance: ADALIMUMAB
     Dates: start: 20140624, end: 20140624
  8. BIOTIN [Concomitant]
     Active Substance: BIOTIN
     Indication: ALOPECIA
     Dates: start: 201408
  9. ENALAPRIL [Concomitant]
     Active Substance: ENALAPRIL
     Indication: PRODUCT USED FOR UNKNOWN INDICATION
  10. CENTRUM [Concomitant]
     Active Substance: VITAMINS
     Indication: CEREBROVASCULAR DISORDER
  11. CENTRUM [Concomitant]
     Active Substance: VITAMINS
     Indication: CARDIAC DISORDER
  12. VITAMIN D [Concomitant]
     Active Substance: CHOLECALCIFEROL
     Indication: PRODUCT USED FOR UNKNOWN INDICATION
  13. FLUORIDE [Concomitant]
     Active Substance: SODIUM FLUORIDE
     Indication: TOOTH DISORDER
  14. REFRESH EYE OINTMENT [Concomitant]
     Indication: DRY EYE
  15. ASPIRIN. [Concomitant]
     Active Substance: ASPIRIN
     Indication: PRODUCT USED FOR UNKNOWN INDICATION
  16. AMLODIPINE [Concomitant]
     Active Substance: AMLODIPINE BESYLATE
     Indication: HYPERTENSION
  17. CALCITRATE [Concomitant]
     Indication: CALCIUM DEFICIENCY
  18. FIBER [Concomitant]
     Active Substance: PSYLLIUM HUSK
     Indication: PRODUCT USED FOR UNKNOWN INDICATION
  19. FISH OIL OMEGA 3 [Concomitant]
     Indication: PRODUCT USED FOR UNKNOWN INDICATION
     Dosage: 1000 MG/300 MG
  20. ULTIMATE FLORA PROBIOTIC [Concomitant]
     Indication: PRODUCT USED FOR UNKNOWN INDICATION
  21. ZYRTEC [Concomitant]
     Active Substance: CETIRIZINE HYDROCHLORIDE
     Indication: SINUS DISORDER

REACTIONS (7)
  - Urinary tract infection [Unknown]
  - Skin discolouration [Unknown]
  - Joint swelling [Recovering/Resolving]
  - Pollakiuria [Unknown]
  - Nodule [Not Recovered/Not Resolved]
  - Increased tendency to bruise [Unknown]
  - Alopecia [Unknown]

NARRATIVE: CASE EVENT DATE: 2014
